FAERS Safety Report 9713880 (Version 4)
Quarter: 2014Q2

REPORT INFORMATION
  Report Type: Report from Study
  Country: IE (occurrence: IE)
  Receive Date: 20131126
  Receipt Date: 20140411
  Transmission Date: 20141212
  Serious: Yes (Hospitalization, Other)
  Sender: FDA-Public Use
  Company Number: IE-ABBVIE-13P-229-1171516-00

PATIENT
  Age: 34 Year
  Sex: Female

DRUGS (12)
  1. HUMIRA [Suspect]
     Indication: CROHN^S DISEASE
     Route: 058
     Dates: start: 20130520
  2. HUMIRA [Suspect]
     Route: 058
     Dates: end: 201311
  3. HUMIRA [Suspect]
     Dates: start: 20131231
  4. CALCICHEW [Concomitant]
     Indication: PRODUCT USED FOR UNKNOWN INDICATION
  5. ASACOLON [Concomitant]
     Indication: PRODUCT USED FOR UNKNOWN INDICATION
  6. ROMEP [Concomitant]
     Indication: PRODUCT USED FOR UNKNOWN INDICATION
  7. DELTACORTRIL [Concomitant]
     Indication: PRODUCT USED FOR UNKNOWN INDICATION
  8. PURI-NETHOL [Concomitant]
     Indication: PRODUCT USED FOR UNKNOWN INDICATION
  9. PROZAC [Concomitant]
     Indication: PRODUCT USED FOR UNKNOWN INDICATION
  10. MESALAZINE [Concomitant]
     Indication: PRODUCT USED FOR UNKNOWN INDICATION
     Dosage: FOR APPROXIMATELY 5 YEARS
     Route: 048
  11. 6-MERCAPTOPURINE [Concomitant]
     Indication: PRODUCT USED FOR UNKNOWN INDICATION
  12. OMEPRAZOLE [Concomitant]
     Indication: PRODUCT USED FOR UNKNOWN INDICATION

REACTIONS (3)
  - Intestinal stenosis [Unknown]
  - Drug ineffective [Unknown]
  - Small intestinal resection [Recovered/Resolved]
